FAERS Safety Report 8328110-7 (Version None)
Quarter: 2012Q2

REPORT INFORMATION
  Report Type: 
  Country: None (occurrence: None)
  Receive Date: 20120502
  Receipt Date: 20120424
  Transmission Date: 20120825
  Serious: Yes (Hospitalization)
  Sender: FDA-Public Use
  Company Number: US-BAYER-2012-002933

PATIENT
  Age: 31 Year
  Sex: Female
  Weight: 104.31 kg

DRUGS (11)
  1. DROSPIRENONE AND ETHINYL ESTRADIOL [Suspect]
     Indication: ACNE
  2. DROSPIRENONE AND ETHINYL ESTRADIOL [Suspect]
     Indication: POLYCYSTIC OVARIES
  3. YASMIN [Suspect]
     Indication: CONTRACEPTION
     Dosage: UNK
     Route: 048
     Dates: start: 20040101, end: 20080101
  4. CLOMID [Concomitant]
  5. YASMIN [Suspect]
     Indication: POLYCYSTIC OVARIES
  6. DROSPIRENONE AND ETHINYL ESTRADIOL [Suspect]
     Indication: CONTRACEPTION
     Dosage: UNK
     Dates: start: 20080101, end: 20120101
  7. ZOLOFT [Concomitant]
     Indication: DEPRESSION
     Dosage: UNK
     Route: 048
     Dates: start: 20040101, end: 20090101
  8. NEXIUM [Concomitant]
     Dosage: UNK
     Route: 048
     Dates: start: 20060511
  9. WELLBUTRIN XL [Concomitant]
     Dosage: 150 MG, UNK
     Route: 048
     Dates: start: 20060313
  10. YASMIN [Suspect]
     Indication: ACNE
  11. METFORMIN HCL [Concomitant]
     Indication: POLYCYSTIC OVARIES
     Dosage: 850 MG, UNK
     Route: 048
     Dates: start: 20040101

REACTIONS (4)
  - CHOLELITHIASIS [None]
  - PAIN [None]
  - DYSPNOEA [None]
  - ABDOMINAL PAIN [None]
